FAERS Safety Report 16030550 (Version 3)
Quarter: 2019Q2

REPORT INFORMATION
  Report Type: Spontaneous
  Country: CA (occurrence: CA)
  Receive Date: 20190304
  Receipt Date: 20190404
  Transmission Date: 20190711
  Serious: Yes (Life-Threatening, Hospitalization, Other)
  Sender: FDA-Public Use
  Company Number: CA-BAYER-2019-044466

PATIENT
  Age: 59 Year
  Sex: Male
  Weight: 108 kg

DRUGS (2)
  1. GADOVIST [Suspect]
     Active Substance: GADOBUTROL
     Indication: NUCLEAR MAGNETIC RESONANCE IMAGING BRAIN
     Dosage: 10.5 ML, ONCE
     Route: 042
     Dates: start: 20190228, end: 20190228
  2. GADOVIST [Suspect]
     Active Substance: GADOBUTROL
     Indication: MULTIPLE SCLEROSIS

REACTIONS (6)
  - Dyspnoea [None]
  - Sneezing [Recovered/Resolved]
  - Pulse absent [Unknown]
  - Loss of consciousness [None]
  - Respiratory arrest [Recovered/Resolved]
  - Cyanosis [Recovered/Resolved]

NARRATIVE: CASE EVENT DATE: 20190228
